FAERS Safety Report 12353518 (Version 4)
Quarter: 2019Q1

REPORT INFORMATION
  Report Type: Spontaneous
  Country: PL (occurrence: PL)
  Receive Date: 20160511
  Receipt Date: 20190318
  Transmission Date: 20190417
  Serious: Yes (Other)
  Sender: FDA-Public Use
  Company Number: PHHY2016PL062339

PATIENT
  Age: 63 Year
  Sex: Male
  Weight: 92 kg

DRUGS (3)
  1. AMLODIPINE [Suspect]
     Active Substance: AMLODIPINE BESYLATE
     Indication: HYPERTENSION
     Dosage: 5 MG, QD
     Route: 065
  2. PERINDOPRIL [Concomitant]
     Active Substance: PERINDOPRIL
     Indication: PRODUCT USED FOR UNKNOWN INDICATION
     Dosage: 10 MG, QD
     Route: 065
  3. SIMVASTATIN. [Interacting]
     Active Substance: SIMVASTATIN
     Indication: TYPE V HYPERLIPIDAEMIA
     Dosage: 20 MG, QD
     Route: 048

REACTIONS (8)
  - Muscular weakness [Recovered/Resolved]
  - Dizziness [Recovered/Resolved]
  - Drug interaction [Recovered/Resolved]
  - Myalgia [Recovered/Resolved]
  - Depression [Recovered/Resolved]
  - Asthenia [Recovered/Resolved]
  - Confusional state [Recovered/Resolved]
  - Motor dysfunction [Recovered/Resolved]
